FAERS Safety Report 12617895 (Version 2)
Quarter: 2016Q4

REPORT INFORMATION
  Report Type: Spontaneous
  Country: US (occurrence: US)
  Receive Date: 20160803
  Receipt Date: 20161202
  Transmission Date: 20170207
  Serious: No
  Sender: FDA-Public Use
  Company Number: US-PFIZER INC-2016370828

PATIENT
  Sex: Female

DRUGS (1)
  1. LYRICA [Suspect]
     Active Substance: PREGABALIN
     Indication: PAIN
     Dosage: UNK

REACTIONS (6)
  - Malaise [Unknown]
  - Condition aggravated [Unknown]
  - Fall [Unknown]
  - Vertigo [Unknown]
  - Intentional product use issue [Unknown]
  - Memory impairment [Unknown]
